FAERS Safety Report 4276379-0 (Version None)
Quarter: 2004Q1

REPORT INFORMATION
  Report Type: 
  Country: None (occurrence: None)
  Receive Date: 20040120
  Receipt Date: 20040120
  Transmission Date: 20041129
  Serious: Yes (Hospitalization)
  Sender: FDA-Public Use
  Company Number: None

PATIENT
  Age: 66 Year
  Sex: Male
  Weight: 86.8 kg

DRUGS (18)
  1. ALLOPURINOL [Suspect]
     Indication: GOUT
     Dosage: 200 MG QD
     Dates: start: 20031101, end: 20031110
  2. COLCHICINE [Concomitant]
  3. PREDNISONE [Concomitant]
  4. HYDROCODONE 5/ACETAMINOPHEN 500MG [Concomitant]
  5. BISCODYL [Concomitant]
  6. PREDNISONE [Concomitant]
  7. DIPHENHYDRAMINE HCL [Concomitant]
  8. LORAZEPAM [Concomitant]
  9. NITROGLYCERIN [Concomitant]
  10. BUMETANIDE [Concomitant]
  11. METOPROLOL TARTRATE [Concomitant]
  12. COLESEVELAM HCL [Concomitant]
  13. TIZANIDINE HCL [Concomitant]
  14. AMITRIPTYLINE HCL [Concomitant]
  15. LANSOPRAZOLE [Concomitant]
  16. ACETAMINOPHEN 300/CODEINE 60MG [Concomitant]
  17. ALBUTEROL 90/IPRATROP 18 MCG [Concomitant]
  18. FLUOCINONIDE 0.05% [Concomitant]

REACTIONS (2)
  - RASH PAPULAR [None]
  - VASCULITIS [None]
